FAERS Safety Report 12508965 (Version 1)
Quarter: 2016Q2

REPORT INFORMATION
  Report Type: Spontaneous
  Country: JP (occurrence: JP)
  Receive Date: 20160629
  Receipt Date: 20160629
  Transmission Date: 20160815
  Serious: Yes (Death, Other)
  Sender: FDA-Public Use
  Company Number: PHJP1997JP001892

PATIENT
  Age: 28 Year
  Sex: Male

DRUGS (1)
  1. SANDIMMUN SOLUTION [Suspect]
     Active Substance: CYCLOSPORINE
     Indication: PRODUCT USED FOR UNKNOWN INDICATION
     Route: 065

REACTIONS (3)
  - Hepatocellular injury [Fatal]
  - Hepatitis [Unknown]
  - Pneumonia [Fatal]
